FAERS Safety Report 12267211 (Version 1)
Quarter: 2016Q2

REPORT INFORMATION
  Report Type: Spontaneous
  Country: None (occurrence: None)
  Receive Date: 20160413
  Receipt Date: 20160413
  Transmission Date: 20160815
  Serious: Yes (Other)
  Sender: FDA-Public Use
  Company Number: None

PATIENT
  Age: 69 Year
  Sex: Female
  Weight: 81.65 kg

DRUGS (1)
  1. CIPROFLOXACIN. [Suspect]
     Active Substance: CIPROFLOXACIN
     Indication: BACTERIAL INFECTION
     Dosage: 500 MG 2X DAILY BY MOUTH FOR 3 DAYS
     Route: 048
     Dates: start: 20160309, end: 20160312

REACTIONS (2)
  - Pain [None]
  - Tendon disorder [None]

NARRATIVE: CASE EVENT DATE: 20160312
